FAERS Safety Report 6643583-3 (Version None)
Quarter: 2010Q1

REPORT INFORMATION
  Report Type: 
  Country: None (occurrence: None)
  Receive Date: 20100320
  Receipt Date: 20100310
  Transmission Date: 20100710
  Serious: Yes (Other)
  Sender: FDA-Public Use
  Company Number: US-JNJFOC-20100303490

PATIENT
  Sex: Female
  Weight: 50.8 kg

DRUGS (6)
  1. DURAGESIC-100 [Suspect]
     Indication: PAIN
     Route: 062
  2. DURAGESIC-100 [Suspect]
     Dosage: NDC NUMBER 50458-0092-05
     Route: 062
  3. LORTAB [Concomitant]
     Indication: BREAKTHROUGH PAIN
     Route: 048
  4. CYMBALTA [Concomitant]
     Indication: DEPRESSION
     Route: 048
  5. ZANAFLEX [Concomitant]
     Indication: MUSCLE SPASMS
     Route: 048
  6. PREMARIN [Concomitant]
     Indication: HORMONE REPLACEMENT THERAPY
     Route: 048

REACTIONS (11)
  - ANXIETY [None]
  - ERUCTATION [None]
  - FLATULENCE [None]
  - GASTRIC DISORDER [None]
  - INCORRECT DRUG ADMINISTRATION RATE [None]
  - MALAISE [None]
  - NERVOUSNESS [None]
  - PAIN [None]
  - PRODUCT QUALITY ISSUE [None]
  - WEIGHT DECREASED [None]
  - WRONG TECHNIQUE IN DRUG USAGE PROCESS [None]
